FAERS Safety Report 26106331 (Version 1)
Quarter: 2025Q4

REPORT INFORMATION
  Report Type: Spontaneous
  Country: US (occurrence: US)
  Receive Date: 20251201
  Receipt Date: 20251201
  Transmission Date: 20260117
  Serious: No
  Sender: CSL Plasma
  Company Number: US-CSLP-14105665390-V14579912-5

PATIENT
  Age: 22 Year
  Sex: Male

DRUGS (1)
  1. ANTICOAGULANT SODIUM CITRATE [Suspect]
     Active Substance: SODIUM CITRATE
     Indication: Anticoagulant therapy
     Route: 050
     Dates: start: 20251113, end: 20251113

REACTIONS (5)
  - Dizziness [Recovered/Resolved]
  - Muscle spasms [Recovered/Resolved]
  - Hypoaesthesia [Recovered/Resolved]
  - Paraesthesia [Recovered/Resolved]
  - Tetany [Recovered/Resolved]

NARRATIVE: CASE EVENT DATE: 20251113
